FAERS Safety Report 4368644-3 (Version None)
Quarter: 2004Q2

REPORT INFORMATION
  Report Type: 
  Country: None (occurrence: None)
  Receive Date: 20040525
  Receipt Date: 20040516
  Transmission Date: 20050107
  Serious: Yes (Hospitalization)
  Sender: FDA-Public Use
  Company Number: 04P-087-0260146-00

PATIENT
  Age: 58 Year
  Sex: Female

DRUGS (2)
  1. OMNICEF [Suspect]
     Indication: BRONCHITIS ACUTE
     Dosage: 300 MG
     Dates: start: 19981130, end: 19981205
  2. AMLODIPINE [Concomitant]

REACTIONS (6)
  - BETA 2 MICROGLOBULIN URINE INCREASED [None]
  - C-REACTIVE PROTEIN INCREASED [None]
  - LYMPHOCYTE STIMULATION TEST POSITIVE [None]
  - NAUSEA [None]
  - RENAL FAILURE [None]
  - TUBULOINTERSTITIAL NEPHRITIS [None]
